FAERS Safety Report 9464717 (Version 1)
Quarter: 2013Q3

REPORT INFORMATION
  Report Type: Spontaneous
  Country: US (occurrence: US)
  Receive Date: 20130819
  Receipt Date: 20130819
  Transmission Date: 20140515
  Serious: No
  Sender: FDA-Public Use
  Company Number: US-PFIZER INC-2013237806

PATIENT
  Age: 42 Year
  Sex: Female
  Weight: 81.63 kg

DRUGS (3)
  1. CELEBREX [Suspect]
     Indication: ARTHRALGIA
     Dosage: 200 MG, 2X/DAY
     Dates: start: 201210, end: 201308
  2. NEURONTIN [Suspect]
     Indication: NEURALGIA
     Dosage: 800 MG, 1X/DAY
     Dates: start: 201210
  3. CELEXA [Concomitant]
     Indication: DEPRESSION
     Dosage: 20 MG, 1X/DAY

REACTIONS (2)
  - Chronic fatigue syndrome [Unknown]
  - Arthralgia [Unknown]
